FAERS Safety Report 10017421 (Version 1)
Quarter: 2014Q1

REPORT INFORMATION
  Report Type: Spontaneous
  Country: US (occurrence: None)
  Receive Date: 20140313
  Receipt Date: 20140313
  Transmission Date: 20141002
  Serious: Yes (Other)
  Sender: FDA-Public Use
  Company Number: None

PATIENT
  Sex: Male
  Weight: 72.58 kg

DRUGS (6)
  1. TRIAZOLAM [Suspect]
     Indication: NERVOUSNESS
     Route: 048
  2. TRIAZOLAM [Suspect]
     Indication: ANXIETY
     Route: 048
  3. TRIAZOLAM [Suspect]
     Indication: SLEEP DISORDER
     Route: 048
  4. TAMSOLOCIN HCL [Concomitant]
  5. AMLODIPINE BESYLATE [Concomitant]
  6. DOXEPIN [Concomitant]

REACTIONS (5)
  - Palpitations [None]
  - Somnolence [None]
  - Dyspnoea [None]
  - Asphyxia [None]
  - Restlessness [None]
